FAERS Safety Report 5777071-3 (Version None)
Quarter: 2008Q2

REPORT INFORMATION
  Report Type: 
  Country: None (occurrence: None)
  Receive Date: 20080618
  Receipt Date: 20080613
  Transmission Date: 20081010
  Serious: Yes (Life-Threatening, Hospitalization)
  Sender: FDA-Public Use
  Company Number: GB-BAYER-200810691BNE

PATIENT
  Sex: Female
  Weight: 60 kg

DRUGS (3)
  1. MABCAMPATH [Suspect]
     Indication: CHRONIC LYMPHOCYTIC LEUKAEMIA
     Route: 058
  2. METHYLPRED [Concomitant]
     Indication: CHRONIC LYMPHOCYTIC LEUKAEMIA
     Route: 048
  3. GCSF (GRANOCYTE) [Concomitant]
     Indication: CHRONIC LYMPHOCYTIC LEUKAEMIA
     Route: 058

REACTIONS (4)
  - BRONCHOPULMONARY ASPERGILLOSIS [None]
  - DYSPNOEA [None]
  - OXYGEN SATURATION DECREASED [None]
  - RESPIRATORY DISORDER [None]
